FAERS Safety Report 9639988 (Version 1)
Quarter: 2013Q4

REPORT INFORMATION
  Report Type: Spontaneous
  Country: US (occurrence: None)
  Receive Date: 20131021
  Receipt Date: 20131021
  Transmission Date: 20140711
  Serious: Yes (Disabling, Other)
  Sender: FDA-Public Use
  Company Number: None

PATIENT
  Age: 73 Year
  Sex: Female
  Weight: 57.61 kg

DRUGS (9)
  1. AZATHIOPRINE [Suspect]
     Indication: CROHN^S DISEASE
     Route: 048
     Dates: start: 20130806, end: 20130829
  2. METOPROLOL [Concomitant]
  3. NITROGLYCERIN [Concomitant]
  4. PREDNISONE [Concomitant]
  5. SIMVASTATIN [Concomitant]
  6. ASPIRIN [Concomitant]
  7. CALCIUM CARBONATE [Concomitant]
  8. CHOLECALCIFEROL [Concomitant]
  9. MULTIVITAMIN [Concomitant]

REACTIONS (19)
  - Feeling abnormal [None]
  - Nausea [None]
  - Vomiting [None]
  - Pyrexia [None]
  - Asthenia [None]
  - Dysgeusia [None]
  - Balance disorder [None]
  - Hyperhidrosis [None]
  - Rash [None]
  - Swelling [None]
  - Rhinorrhoea [None]
  - Pain in extremity [None]
  - Sleep disorder due to general medical condition, insomnia type [None]
  - Muscle spasms [None]
  - White blood cell count increased [None]
  - Weight bearing difficulty [None]
  - Toxicity to various agents [None]
  - Nerve injury [None]
  - Activities of daily living impaired [None]
